FAERS Safety Report 13608003 (Version 3)
Quarter: 2017Q3

REPORT INFORMATION
  Report Type: Spontaneous
  Country: US (occurrence: US)
  Receive Date: 20170602
  Receipt Date: 20170727
  Transmission Date: 20171127
  Serious: Yes (Death, Hospitalization, Other)
  Sender: FDA-Public Use
  Company Number: US-BIOVITRUM-2017US0551

PATIENT
  Age: 5 Year
  Sex: Female
  Weight: 23 kg

DRUGS (4)
  1. CANAKINUMAB [Concomitant]
     Active Substance: CANAKINUMAB
     Indication: STILL^S DISEASE
     Dates: start: 201612, end: 201612
  2. TACROLIMUS. [Concomitant]
     Active Substance: TACROLIMUS
     Indication: STILL^S DISEASE
     Dates: start: 201702
  3. KINERET [Suspect]
     Active Substance: ANAKINRA
     Indication: STILL^S DISEASE
     Route: 058
     Dates: start: 20151014
  4. ACTEMRA [Concomitant]
     Active Substance: TOCILIZUMAB
     Indication: STILL^S DISEASE
     Dates: start: 201607, end: 201607

REACTIONS (2)
  - Histiocytosis haematophagic [Recovered/Resolved]
  - Pneumocystis jirovecii pneumonia [Recovered/Resolved]

NARRATIVE: CASE EVENT DATE: 20170223
